FAERS Safety Report 4314377-9 (Version None)
Quarter: 2004Q1

REPORT INFORMATION
  Report Type: 
  Country: None (occurrence: None)
  Receive Date: 20040308
  Receipt Date: 20031229
  Transmission Date: 20041129
  Serious: Yes (Hospitalization, Other)
  Sender: FDA-Public Use
  Company Number: KII-2003-0007756

PATIENT
  Age: 62 Year
  Sex: Female

DRUGS (9)
  1. MORPHINE SULFATE [Suspect]
     Dosage: QID, ORAL
     Route: 048
  2. CLONIDINE [Suspect]
     Dosage: ORAL
     Route: 048
  3. CALCIUM CHANNEL BLOCKERS [Suspect]
     Dosage: ORAL
     Route: 048
  4. ACETYLSALICYLIC ACID SRT [Suspect]
  5. INSULIN [Concomitant]
  6. PROTON PUMP INHIBITOR [Concomitant]
  7. BETA BLOCKING AGENTS [Concomitant]
  8. IBUPROFEN [Concomitant]
  9. ANTIBIOTICS [Concomitant]

REACTIONS (10)
  - AGITATION [None]
  - BLOOD CREATINE PHOSPHOKINASE INCREASED [None]
  - BLOOD POTASSIUM INCREASED [None]
  - BODY TEMPERATURE INCREASED [None]
  - BRADYCARDIA [None]
  - CHEST PAIN [None]
  - HYPOTENSION [None]
  - LETHARGY [None]
  - MULTIPLE DRUG OVERDOSE [None]
  - NODAL RHYTHM [None]
